FAERS Safety Report 7287452-7 (Version None)
Quarter: 2011Q1

REPORT INFORMATION
  Report Type: 
  Country: None (occurrence: None)
  Receive Date: 20110211
  Receipt Date: 20110128
  Transmission Date: 20110831
  Serious: Yes (Life-Threatening, Hospitalization)
  Sender: FDA-Public Use
  Company Number: FR-PFIZER INC-2011020237

PATIENT
  Age: 55 Year
  Sex: Male

DRUGS (13)
  1. OFLOCET [Suspect]
     Indication: INFECTION
     Dosage: 200 MG, 2X/DAY
     Route: 042
     Dates: start: 20101229, end: 20101231
  2. NOVONORM [Suspect]
     Indication: TYPE 2 DIABETES MELLITUS
     Dosage: 5 MG, 1X/DAY
     Route: 048
     Dates: end: 20110102
  3. LASIX [Concomitant]
  4. XATRAL [Suspect]
     Dosage: 10 MG, 1X/DAY
     Route: 048
     Dates: end: 20110104
  5. JANUVIA [Suspect]
     Indication: TYPE 2 DIABETES MELLITUS
     Dosage: 1 DF, 1X/DAY
     Route: 048
     Dates: end: 20110102
  6. XANAX [Suspect]
     Dosage: 0.25 MG, 2X/DAY
     Route: 048
     Dates: end: 20110105
  7. DEPAMIDE [Suspect]
     Dosage: 300 MG, 3X/DAY
     Route: 048
     Dates: end: 20110106
  8. INSULIN DETEMIR [Concomitant]
  9. AUGMENTIN '125' [Suspect]
     Indication: INFECTION
     Dosage: 1 G, 3X/DAY
     Route: 042
     Dates: start: 20101229, end: 20101231
  10. TAHOR [Concomitant]
     Dosage: UNK
  11. ATARAX [Suspect]
     Dosage: 50 MG, 1X/DAY
     Route: 048
     Dates: end: 20110101
  12. LOVENOX [Suspect]
     Indication: THROMBOSIS PROPHYLAXIS
     Dosage: 0.6 ML, 1X/DAY
     Route: 058
     Dates: start: 20100901, end: 20110103
  13. INIPOMP [Concomitant]

REACTIONS (3)
  - THROMBOCYTOPENIA [None]
  - PURPURA [None]
  - INFECTION [None]
